FAERS Safety Report 8202891-5 (Version None)
Quarter: 2012Q1

REPORT INFORMATION
  Report Type: 
  Country: None (occurrence: None)
  Receive Date: 20120312
  Receipt Date: 20120312
  Transmission Date: 20120608
  Serious: Yes (Life-Threatening, Other)
  Sender: FDA-Public Use
  Company Number: None

PATIENT
  Age: 70 Year
  Sex: Female
  Weight: 84.821 kg

DRUGS (6)
  1. ACTOS [Concomitant]
     Dosage: 1
     Route: 002
     Dates: start: 20111205, end: 20111216
  2. ASPIRIN [Concomitant]
  3. PROPRANOLOL [Concomitant]
  4. LEVOXYL [Concomitant]
  5. ACTOS [Suspect]
     Indication: INSULIN RESISTANCE
     Route: 002
     Dates: start: 20111012, end: 20111108
  6. SIMVASTATIN [Concomitant]

REACTIONS (9)
  - EYELID OEDEMA [None]
  - FLATULENCE [None]
  - DYSPNOEA [None]
  - CONSTIPATION [None]
  - FATIGUE [None]
  - URINE OUTPUT INCREASED [None]
  - FLUID RETENTION [None]
  - ABDOMINAL PAIN [None]
  - URETHRAL PAIN [None]
